FAERS Safety Report 5376392-6 (Version None)
Quarter: 2007Q2

REPORT INFORMATION
  Report Type: 
  Country: None (occurrence: None)
  Receive Date: 20070627
  Receipt Date: 20061106
  Transmission Date: 20071010
  Serious: Yes (Other)
  Sender: FDA-Public Use
  Company Number: 2006136758

PATIENT
  Sex: Male
  Weight: 83.9154 kg

DRUGS (9)
  1. NICOTROL [Suspect]
     Indication: SMOKING CESSATION THERAPY
     Dosage: 3 TO 4 CARTRIDGES DAILY, INHALATION
     Route: 055
     Dates: start: 20060601
  2. OXYCODONE HYDROCHLORIDE [Concomitant]
  3. CLONAZEPAM [Concomitant]
  4. OXYCOCET     (OXYCODONE HYDROCHLORIDE, PARACETAMOL) [Concomitant]
  5. ALPRAZOLAM [Concomitant]
  6. CYCLOBENZAPRINE HCL [Concomitant]
  7. AMITRIPTYLINE HCL [Concomitant]
  8. TAMSULOSIN HCL [Concomitant]
  9. LEVOTHYROXINE SODIUM [Concomitant]

REACTIONS (1)
  - DEPENDENCE [None]
